FAERS Safety Report 7384763-1 (Version None)
Quarter: 2011Q1

REPORT INFORMATION
  Report Type: 
  Country: None (occurrence: None)
  Receive Date: 20110330
  Receipt Date: 20110325
  Transmission Date: 20110831
  Serious: Yes (Death)
  Sender: FDA-Public Use
  Company Number: PHHY2011US25176

PATIENT
  Sex: Male
  Weight: 88 kg

DRUGS (2)
  1. EXJADE [Suspect]
     Indication: BRONCHIAL CARCINOMA
     Dosage: 1500 MG, QD
     Route: 048
     Dates: start: 20101124
  2. EXJADE [Suspect]
     Indication: TRACHEAL CANCER

REACTIONS (1)
  - LUNG NEOPLASM MALIGNANT [None]
